FAERS Safety Report 14604113 (Version 1)
Quarter: 2018Q1

REPORT INFORMATION
  Report Type: Spontaneous
  Country: US (occurrence: US)
  Receive Date: 20180305
  Receipt Date: 20180305
  Transmission Date: 20180509
  Serious: Yes (Other)
  Sender: FDA-Public Use
  Company Number: None

PATIENT
  Age: 39 Year
  Sex: Female
  Weight: 94 kg

DRUGS (2)
  1. GLATIRAMER ACETATE. [Suspect]
     Active Substance: GLATIRAMER ACETATE
     Indication: MULTIPLE SCLEROSIS
     Dosage: ?          OTHER FREQUENCY:SQ 3XWKLY;?
     Route: 058
     Dates: start: 20180117, end: 20180305
  2. GLATIRAMER ACETATE 40 MG SQ THREE TIMES WEEKLY [Concomitant]
     Active Substance: GLATIRAMER ACETATE
     Dates: start: 20180117, end: 20180305

REACTIONS (3)
  - Upper respiratory tract infection [None]
  - Hypoaesthesia [None]
  - Paraesthesia [None]

NARRATIVE: CASE EVENT DATE: 20180305
